FAERS Safety Report 12275247 (Version 2)
Quarter: 2024Q4

REPORT INFORMATION
  Report Type: Spontaneous
  Country: US (occurrence: US)
  Receive Date: 20160415
  Receipt Date: 20241223
  Transmission Date: 20250115
  Serious: Yes (Other)
  Sender: AMGEN
  Company Number: US-AMGEN-USASP2016046463

PATIENT

DRUGS (4)
  1. CARFILZOMIB [Suspect]
     Active Substance: CARFILZOMIB
     Indication: Plasma cell myeloma
     Dosage: 20 MG/M2 DAY 1 AND 2
     Route: 042
  2. CARFILZOMIB [Suspect]
     Active Substance: CARFILZOMIB
     Dosage: 27 MG/M2, DAY 8 AND ONWARDS -27
     Route: 042
  3. PELAREOREP [Suspect]
     Active Substance: PELAREOREP
     Indication: Plasma cell myeloma
     Dosage: (3 X 10^10 TCID50 /DAY)
     Route: 065
  4. DEXAMETHASONE [Concomitant]
     Active Substance: DEXAMETHASONE
     Dosage: 20 MILLIGRAM DAYS 1, 2, 8, 9, 15, AND 16 OF A 28-DAY CYCLE
     Route: 065

REACTIONS (3)
  - Arteriovenous malformation [Unknown]
  - Gastrointestinal haemorrhage [Unknown]
  - Thrombocytopenia [Unknown]
